FAERS Safety Report 21190071 (Version 2)
Quarter: 2022Q3

REPORT INFORMATION
  Report Type: Spontaneous
  Country: CA (occurrence: CA)
  Receive Date: 20220809
  Receipt Date: 20220824
  Transmission Date: 20221027
  Serious: Yes (Hospitalization, Other)
  Sender: FDA-Public Use
  Company Number: CA-PFIZER INC-202201041570

PATIENT
  Age: 36 Year
  Sex: Male
  Weight: 136.05 kg

DRUGS (6)
  1. CELEBREX [Suspect]
     Active Substance: CELECOXIB
     Dosage: 500 MG
     Route: 048
     Dates: start: 2020
  2. INFLECTRA [Concomitant]
     Active Substance: INFLIXIMAB-DYYB
     Indication: Ankylosing spondylitis
     Dosage: 1000 MG, 0, 2, 6 THEN Q 8 WEEKS. NOT YET STARTED
     Route: 042
  3. MORPHINE [Concomitant]
     Active Substance: MORPHINE
     Dosage: UNK
  4. MORPHINE [Concomitant]
     Active Substance: MORPHINE
     Dosage: 1 DF
     Route: 065
  5. GABAPENTIN [Concomitant]
     Active Substance: GABAPENTIN
     Dosage: UNK
  6. GABAPENTIN [Concomitant]
     Active Substance: GABAPENTIN
     Dosage: 600 MG
     Route: 065
     Dates: start: 2020

REACTIONS (4)
  - Acne [Unknown]
  - Cellulitis [Unknown]
  - Headache [Unknown]
  - Dizziness [Unknown]

NARRATIVE: CASE EVENT DATE: 20220101
